FAERS Safety Report 5916069-9 (Version None)
Quarter: 2008Q4

REPORT INFORMATION
  Report Type: 
  Country: None (occurrence: None)
  Receive Date: 20081013
  Receipt Date: 20081006
  Transmission Date: 20090506
  Serious: Yes (Death)
  Sender: FDA-Public Use
  Company Number: JP-BRISTOL-MYERS SQUIBB COMPANY-14365035

PATIENT
  Age: 29 Year
  Sex: Female

DRUGS (7)
  1. ABILIFY [Suspect]
     Route: 048
  2. ARTANE [Concomitant]
     Route: 065
  3. LANDSEN [Concomitant]
     Dosage: TABLET
     Route: 065
  4. RHYTHMY [Concomitant]
     Dosage: TABLET
     Route: 065
  5. RISPERDAL [Concomitant]
     Route: 065
  6. FLUVOXAMINE MALEATE [Concomitant]
     Dosage: TABLET
     Route: 065
  7. DORAL [Concomitant]

REACTIONS (1)
  - DEATH [None]
